FAERS Safety Report 5952130-0 (Version None)
Quarter: 2008Q4

REPORT INFORMATION
  Report Type: 
  Country: None (occurrence: None)
  Receive Date: 20081113
  Receipt Date: 20080529
  Transmission Date: 20090506
  Serious: No
  Sender: FDA-Public Use
  Company Number: A0730200A

PATIENT
  Sex: Male

DRUGS (3)
  1. CARVEDILOL [Suspect]
     Indication: HYPERTENSION
     Dosage: 3.125MG TWICE PER DAY
     Route: 048
     Dates: start: 20080201
  2. SYNTHROID [Concomitant]
  3. XANAX [Concomitant]

REACTIONS (2)
  - DYSURIA [None]
  - SOMNOLENCE [None]
